FAERS Safety Report 8975298 (Version 1)
Quarter: 2012Q4

REPORT INFORMATION
  Report Type: 
  Country: US (occurrence: US)
  Receive Date: 20121219
  Receipt Date: 20121219
  Transmission Date: 20130627
  Serious: No
  Sender: FDA-Public Use
  Company Number: US-AMGEN-USASP2012074784

PATIENT
  Age: 76 Year
  Sex: Female

DRUGS (17)
  1. PROLIA [Suspect]
     Indication: OSTEOPOROSIS POSTMENOPAUSAL
     Dosage: 60 mg, q6mo
  2. PROAIR                             /00139502/ [Concomitant]
  3. ASPIRIN [Concomitant]
  4. SPIRIVA [Concomitant]
  5. CLARITIN                           /00413701/ [Concomitant]
  6. ZINC [Concomitant]
  7. VITAMIN C                          /00008001/ [Concomitant]
  8. VITAMIN B COMPLEX [Concomitant]
  9. GLUCOSAMINE [Concomitant]
  10. HYDROCHLOROTHIAZIDE [Concomitant]
  11. VITAMIN D /00107901/ [Concomitant]
  12. TOPROL [Concomitant]
  13. ALEVE [Concomitant]
  14. LIPITOR [Concomitant]
  15. ALTACE [Concomitant]
  16. ACIPHEX [Concomitant]
  17. LORAZEPAM [Concomitant]

REACTIONS (4)
  - Thrombocytopenia [Unknown]
  - Macrocytosis [Unknown]
  - Leukopenia [Unknown]
  - Neutrophil count abnormal [Unknown]
